FAERS Safety Report 8337588-4 (Version None)
Quarter: 2012Q2

REPORT INFORMATION
  Report Type: 
  Country: None (occurrence: None)
  Receive Date: 20120504
  Receipt Date: 20120426
  Transmission Date: 20120825
  Serious: No
  Sender: FDA-Public Use
  Company Number: PHHY2012BR036093

PATIENT
  Sex: Female
  Weight: 61 kg

DRUGS (2)
  1. TASIGNA [Suspect]
     Indication: LEUKAEMIA
     Dosage: 400 MG, BID , 2 CAPSULES AFTER LUNCH AND TWO CAPSULES AT NIGHT
     Route: 048
  2. OMEPRAZOLE [Concomitant]

REACTIONS (3)
  - MALAISE [None]
  - WEIGHT DECREASED [None]
  - DECREASED APPETITE [None]
